FAERS Safety Report 4590448-7 (Version None)
Quarter: 2005Q1

REPORT INFORMATION
  Report Type: 
  Country: None (occurrence: None)
  Receive Date: 20050218
  Receipt Date: 20050218
  Transmission Date: 20050727
  Serious: Yes (Hospitalization)
  Sender: FDA-Public Use
  Company Number: None

PATIENT
  Sex: Female
  Weight: 58.5 kg

DRUGS (9)
  1. GEFITINIB 250MG TABS, ASTRAZENECA [Suspect]
     Indication: GLIOBLASTOMA MULTIFORME
     Dosage: 750 MG DAILY PO
     Route: 048
     Dates: start: 20041209, end: 20050114
  2. RAPAMUNE [Suspect]
     Indication: GLIOBLASTOMA MULTIFORME
     Dosage: 5 MG PO DAILY
     Route: 048
     Dates: start: 20041216, end: 20050114
  3. SYNTHROID [Concomitant]
  4. RITALIN [Concomitant]
  5. COREG [Concomitant]
  6. CALTRATE [Concomitant]
  7. TRICOR [Concomitant]
  8. DECADRON [Concomitant]
  9. RANITIDINE [Concomitant]

REACTIONS (10)
  - BRAIN OEDEMA [None]
  - COMPUTERISED TOMOGRAM ABNORMAL [None]
  - ELECTROENCEPHALOGRAM ABNORMAL [None]
  - FACIAL PALSY [None]
  - FATIGUE [None]
  - GRAND MAL CONVULSION [None]
  - INFARCTION [None]
  - MALIGNANT NEOPLASM PROGRESSION [None]
  - NERVOUS SYSTEM DISORDER [None]
  - SPEECH DISORDER [None]
